FAERS Safety Report 7830813-5 (Version None)
Quarter: 2011Q4

REPORT INFORMATION
  Report Type: 
  Country: None (occurrence: None)
  Receive Date: 20111021
  Receipt Date: 20111014
  Transmission Date: 20120403
  Serious: Yes (Congenital Anomaly)
  Sender: FDA-Public Use
  Company Number: FR-GLAXOSMITHKLINE-B0748262A

PATIENT

DRUGS (1)
  1. SUMATRIPTAN SUCCINATE [Suspect]
     Indication: MIGRAINE WITH AURA
     Route: 064
     Dates: start: 20110101, end: 20110101

REACTIONS (4)
  - CONGENITAL HYDROCEPHALUS [None]
  - CONGENITAL AQUEDUCTAL STENOSIS [None]
  - MATERNAL EXPOSURE DURING PREGNANCY [None]
  - CEREBRAL VENTRICLE DILATATION [None]
